FAERS Safety Report 24568643 (Version 1)
Quarter: 2024Q4

REPORT INFORMATION
  Report Type: Spontaneous
  Country: ES (occurrence: ES)
  Receive Date: 20241031
  Receipt Date: 20241031
  Transmission Date: 20250114
  Serious: Yes (Other)
  Sender: MYLAN
  Company Number: ES-STADA-01309954

PATIENT
  Age: 31 Year
  Sex: Male

DRUGS (8)
  1. MIRTAZAPINE [Interacting]
     Active Substance: MIRTAZAPINE
     Indication: Depressive symptom
     Dosage: UNK
     Route: 065
  2. VORTIOXETINE [Interacting]
     Active Substance: VORTIOXETINE
     Indication: Depressive symptom
     Dosage: UNK
     Route: 065
     Dates: start: 202202
  3. COBICISTAT\DARUNAVIR ETHANOLATE [Suspect]
     Active Substance: COBICISTAT\DARUNAVIR ETHANOLATE
     Indication: Acute HIV infection
     Dosage: UNK
     Route: 065
     Dates: end: 202211
  4. LAMIVUDINE [Suspect]
     Active Substance: LAMIVUDINE
     Indication: Acute HIV infection
     Dosage: UNK
     Route: 065
     Dates: end: 202211
  5. OMEPRAZOLE [Concomitant]
     Active Substance: OMEPRAZOLE
     Indication: Gastrooesophageal reflux disease
     Dosage: UNK
     Route: 065
  6. BICTEGRAVIR\EMTRICITABINE\TENOFOVIR ALAFENAMIDE [Concomitant]
     Active Substance: BICTEGRAVIR\EMTRICITABINE\TENOFOVIR ALAFENAMIDE
     Indication: Acute HIV infection
     Dosage: UNK
     Route: 065
  7. Cobicistat;Darunavir;Emtricitabine;Tenofovir alafenamide [Concomitant]
     Indication: Acute HIV infection
     Dosage: UNK
     Route: 065
  8. DOLUTEGRAVIR SODIUM\LAMIVUDINE [Concomitant]
     Active Substance: DOLUTEGRAVIR SODIUM\LAMIVUDINE
     Indication: Acute HIV infection
     Dosage: UNK
     Route: 065

REACTIONS (3)
  - Palpitations [Unknown]
  - Diarrhoea [Unknown]
  - Drug interaction [Unknown]
